FAERS Safety Report 18258460 (Version 1)
Quarter: 2020Q3

REPORT INFORMATION
  Report Type: Other
  Country: US (occurrence: US)
  Receive Date: 20200911
  Receipt Date: 20200911
  Transmission Date: 20201103
  Serious: No
  Sender: FDA-Public Use
  Company Number: US-LEADIANT BIOSCIENCES INC-2020STPI000079

PATIENT

DRUGS (5)
  1. GLEOSTINE [Concomitant]
     Active Substance: LOMUSTINE
  2. OMEPRAZOLE. [Concomitant]
     Active Substance: OMEPRAZOLE
  3. SENNA ALATA [Concomitant]
  4. MATULANE [Suspect]
     Active Substance: PROCARBAZINE HYDROCHLORIDE
     Indication: BRAIN NEOPLASM MALIGNANT
     Dosage: 150 MILLIGRAM ALTERNATING DAYS STARTING ON DAY 8
     Route: 048
     Dates: start: 20190510
  5. DOCUSATE [Concomitant]
     Active Substance: DOCUSATE

REACTIONS (2)
  - Urticaria [Recovered/Resolved]
  - Rash [Recovered/Resolved]

NARRATIVE: CASE EVENT DATE: 20191101
